FAERS Safety Report 20148511 (Version 5)
Quarter: 2022Q3

REPORT INFORMATION
  Report Type: Report from Study
  Country: US (occurrence: US)
  Receive Date: 20211204
  Receipt Date: 20220930
  Transmission Date: 20221027
  Serious: No
  Sender: FDA-Public Use
  Company Number: US-NOVARTISTESTPH-NVSC2021US277120

PATIENT
  Sex: Female

DRUGS (1)
  1. COSENTYX [Suspect]
     Active Substance: SECUKINUMAB
     Indication: Psoriasis
     Dosage: UNK
     Route: 065

REACTIONS (11)
  - Injection site bruising [Unknown]
  - Injection site haemorrhage [Unknown]
  - Pruritus [Unknown]
  - Injection site extravasation [Unknown]
  - Injection site pain [Unknown]
  - COVID-19 [Unknown]
  - Cough [Unknown]
  - Chills [Unknown]
  - Pain [Unknown]
  - Feeling abnormal [Unknown]
  - Poor quality sleep [Unknown]
